FAERS Safety Report 5229876-5 (Version None)
Quarter: 2007Q1

REPORT INFORMATION
  Report Type: 
  Country: None (occurrence: None)
  Receive Date: 20070206
  Receipt Date: 20061116
  Transmission Date: 20070707
  Serious: No
  Sender: FDA-Public Use
  Company Number: US-GLAXOSMITHKLINE-A0627823A

PATIENT
  Age: 24 Year
  Sex: Male

DRUGS (3)
  1. PAXIL [Suspect]
     Indication: DEPRESSION
     Dosage: 40MG PER DAY
     Route: 048
     Dates: start: 20060101
  2. RISPERDAL [Concomitant]
  3. ARTANE [Concomitant]

REACTIONS (1)
  - DRUG INEFFECTIVE [None]
